FAERS Safety Report 5116254-2 (Version None)
Quarter: 2006Q3

REPORT INFORMATION
  Report Type: 
  Country: None (occurrence: None)
  Receive Date: 20060927
  Receipt Date: 20060920
  Transmission Date: 20061208
  Serious: Yes (Death, Hospitalization)
  Sender: FDA-Public Use
  Company Number: US-GLAXOSMITHKLINE-B0439337A

PATIENT
  Age: 35 Year
  Sex: Female

DRUGS (4)
  1. WELLBUTRIN [Suspect]
     Dosage: 2.7G CUMULATIVE DOSE
     Route: 048
  2. IBUPROFEN [Suspect]
     Dosage: 72MG CUMULATIVE DOSE
     Route: 048
  3. SLEEPING MEDICATION [Suspect]
     Route: 048
  4. ETHANOL [Suspect]
     Route: 048

REACTIONS (14)
  - CARDIAC ARREST [None]
  - COMPLETED SUICIDE [None]
  - CONDUCTION DISORDER [None]
  - ELECTROCARDIOGRAM QRS COMPLEX PROLONGED [None]
  - ELECTROCARDIOGRAM QT CORRECTED INTERVAL PROLONGED [None]
  - HEART RATE INCREASED [None]
  - HYPOTENSION [None]
  - MENTAL IMPAIRMENT [None]
  - MYOCLONUS [None]
  - OVERDOSE [None]
  - RESPIRATORY DISORDER [None]
  - RESPIRATORY RATE INCREASED [None]
  - SOMNOLENCE [None]
  - VOMITING [None]
